FAERS Safety Report 7311205-4 (Version None)
Quarter: 2011Q1

REPORT INFORMATION
  Report Type: 
  Country: None (occurrence: None)
  Receive Date: 20110224
  Receipt Date: 20100616
  Transmission Date: 20110831
  Serious: Yes (Hospitalization)
  Sender: FDA-Public Use
  Company Number: US-BAYER-200926420NA

PATIENT
  Sex: Female
  Weight: 70.295 kg

DRUGS (8)
  1. ASCORBIC ACID [Concomitant]
  2. UNCODEABLE ^UNCLASSIFIABLE^ [Concomitant]
  3. YAZ [Suspect]
     Indication: ORAL CONTRACEPTION
     Dosage: 1 DF (DAILY DOSE), QD, ORAL
     Route: 048
     Dates: start: 20080201, end: 20080718
  4. YAZ [Suspect]
     Indication: PREMENSTRUAL SYNDROME
  5. MULTI-VITAMIN [Concomitant]
  6. YAZ [Suspect]
     Indication: ACNE
  7. VITAMIN D [Concomitant]
  8. CALCIUM [Concomitant]

REACTIONS (6)
  - PAIN IN EXTREMITY [None]
  - DEEP VEIN THROMBOSIS [None]
  - CHEST PAIN [None]
  - DYSPNOEA [None]
  - PAIN [None]
  - PULMONARY EMBOLISM [None]
